FAERS Safety Report 20022699 (Version 1)
Quarter: 2021Q4

REPORT INFORMATION
  Report Type: Report from Study
  Country: CA (occurrence: None)
  Receive Date: 20211102
  Receipt Date: 20211102
  Transmission Date: 20220303
  Serious: Yes (Death)
  Sender: FDA-Public Use
  Company Number: 2021A790556

PATIENT
  Sex: Female

DRUGS (7)
  1. IMFINZI [Suspect]
     Active Substance: DURVALUMAB
     Indication: Small cell lung cancer extensive stage
     Route: 042
     Dates: start: 20210927
  2. AS [Concomitant]
  3. CLOPIDIDREL [Concomitant]
  4. GLICLAZIDE [Concomitant]
     Active Substance: GLICLAZIDE
  5. HYDROCHOTHIAZIDE [Concomitant]
  6. ROSUVASTATIN [Concomitant]
     Active Substance: ROSUVASTATIN
  7. TRAZODONE [Concomitant]
     Active Substance: TRAZODONE HYDROCHLORIDE

REACTIONS (1)
  - Death [Fatal]
